FAERS Safety Report 24564262 (Version 3)
Quarter: 2024Q4

REPORT INFORMATION
  Report Type: Spontaneous
  Country: US (occurrence: US)
  Receive Date: 20241030
  Receipt Date: 20241106
  Transmission Date: 20250115
  Serious: Yes (Other)
  Sender: ROCHE
  Company Number: US-ROCHE-10000119090

PATIENT
  Sex: Female
  Weight: 0.79 kg

DRUGS (1)
  1. EVRYSDI [Suspect]
     Active Substance: RISDIPLAM
     Indication: Spinal muscular atrophy
     Route: 048

REACTIONS (4)
  - Haematochezia [Recovered/Resolved]
  - Salivary hypersecretion [Unknown]
  - Abdominal distension [Unknown]
  - Necrotising colitis [Recovering/Resolving]
